FAERS Safety Report 8840621 (Version 2)
Quarter: 2015Q3

REPORT INFORMATION
  Report Type: Report from Study
  Country: US (occurrence: US)
  Receive Date: 20121015
  Receipt Date: 20150818
  Transmission Date: 20151125
  Serious: Yes (Other)
  Sender: FDA-Public Use
  Company Number: US-ROCHE-1112421

PATIENT
  Sex: Female
  Weight: 126.21 kg

DRUGS (13)
  1. ALDORIL [Concomitant]
     Active Substance: HYDROCHLOROTHIAZIDE\METHYLDOPA
     Route: 042
  2. NUTROPIN AQ [Suspect]
     Active Substance: SOMATROPIN
     Indication: DWARFISM
     Route: 058
     Dates: start: 199904
  3. DEMADEX [Concomitant]
     Active Substance: TORSEMIDE
     Indication: OEDEMA PERIPHERAL
     Route: 065
  4. NUTROPIN AQ [Suspect]
     Active Substance: SOMATROPIN
     Dosage: 0.50 CC
     Route: 058
  5. SYNTHROID [Concomitant]
     Active Substance: LEVOTHYROXINE SODIUM
     Route: 065
  6. PREDNISONE. [Concomitant]
     Active Substance: PREDNISONE
  7. ASPIRIN. [Concomitant]
     Active Substance: ASPIRIN
     Dosage: IF NEEDED
     Route: 048
  8. NUTROPIN AQ [Suspect]
     Active Substance: SOMATROPIN
     Indication: GROWTH HORMONE DEFICIENCY
     Route: 058
  9. TENORMIN [Concomitant]
     Active Substance: ATENOLOL
     Route: 065
  10. SYNTHROID [Concomitant]
     Active Substance: LEVOTHYROXINE SODIUM
     Route: 065
  11. METHOTREXATE [Concomitant]
     Active Substance: METHOTREXATE
  12. PROVERA [Concomitant]
     Active Substance: MEDROXYPROGESTERONE ACETATE
  13. ASPIRIN. [Concomitant]
     Active Substance: ASPIRIN
     Route: 065

REACTIONS (4)
  - Haemorrhagic stroke [Unknown]
  - Malaise [Unknown]
  - Sarcoidosis [Unknown]
  - Tremor [Unknown]
